FAERS Safety Report 6902218-2 (Version None)
Quarter: 2010Q3

REPORT INFORMATION
  Report Type: 
  Country: None (occurrence: None)
  Receive Date: 20100803
  Receipt Date: 20080428
  Transmission Date: 20110219
  Serious: No
  Sender: FDA-Public Use
  Company Number: US-PFIZER INC-2008035745

PATIENT
  Sex: Female
  Weight: 63.1 kg

DRUGS (3)
  1. LYRICA [Suspect]
     Indication: FIBROMYALGIA
  2. HYDROCHLOROTHIAZIDE [Concomitant]
  3. FLEXERIL [Concomitant]

REACTIONS (3)
  - ABDOMINAL DISTENSION [None]
  - DRUG INEFFECTIVE [None]
  - WEIGHT INCREASED [None]
